FAERS Safety Report 9680726 (Version 1)
Quarter: 2013Q4

REPORT INFORMATION
  Report Type: Spontaneous
  Country: US (occurrence: US)
  Receive Date: 20131111
  Receipt Date: 20131111
  Transmission Date: 20140711
  Serious: No
  Sender: FDA-Public Use
  Company Number: US-PFIZER INC-2013316168

PATIENT
  Sex: Female

DRUGS (2)
  1. IBUPROFEN [Suspect]
     Dosage: UNK
  2. HUMIRA [Suspect]
     Dosage: UNK

REACTIONS (2)
  - Drug effect incomplete [Unknown]
  - Abdominal pain upper [Unknown]
